FAERS Safety Report 7844479-1 (Version None)
Quarter: 2011Q4

REPORT INFORMATION
  Report Type: 
  Country: None (occurrence: None)
  Receive Date: 20111025
  Receipt Date: 20111014
  Transmission Date: 20120403
  Serious: Yes (Other)
  Sender: FDA-Public Use
  Company Number: US-JNJFOC-20111006848

PATIENT
  Sex: Female
  Weight: 73.94 kg

DRUGS (2)
  1. REMICADE [Suspect]
     Indication: RHEUMATOID ARTHRITIS
     Route: 042
     Dates: start: 20100701
  2. MOBIC [Concomitant]
     Indication: PAIN
     Route: 048
     Dates: start: 20080101

REACTIONS (4)
  - WEIGHT INCREASED [None]
  - SEBORRHOEIC DERMATITIS [None]
  - DRY SKIN [None]
  - PRURITUS [None]
